FAERS Safety Report 9044905 (Version 1)
Quarter: 2013Q1

REPORT INFORMATION
  Report Type: Report from Study
  Country: JP (occurrence: JP)
  Receive Date: 20130130
  Receipt Date: 20130130
  Transmission Date: 20140127
  Serious: Yes (Other)
  Sender: FDA-Public Use
  Company Number: JP-GLAXOSMITHKLINE-B0860286A

PATIENT
  Age: 78 None
  Sex: Male
  Weight: 60 kg

DRUGS (1)
  1. SERETIDE (50MCG/250MCG) [Suspect]
     Indication: EMPHYSEMA
     Dosage: 250MCG TWICE PER DAY
     Route: 055
     Dates: start: 20100628, end: 20100913

REACTIONS (3)
  - Loss of consciousness [Recovered/Resolved]
  - Pneumonia bacterial [Recovered/Resolved]
  - Tremor [Recovered/Resolved]
